FAERS Safety Report 5372098-8 (Version None)
Quarter: 2007Q2

REPORT INFORMATION
  Report Type: 
  Country: None (occurrence: None)
  Receive Date: 20070627
  Receipt Date: 20070612
  Transmission Date: 20071010
  Serious: Yes (Death)
  Sender: FDA-Public Use
  Company Number: TH-MERCK-0706THA00002

PATIENT
  Age: 63 Year
  Sex: Female
  Weight: 43 kg

DRUGS (7)
  1. INVANZ [Suspect]
     Indication: DIABETIC FOOT INFECTION
     Route: 041
     Dates: start: 20070530, end: 20070603
  2. ISOSORBIDE MONONITRATE [Concomitant]
     Route: 065
  3. SODIUM BICARBONATE [Concomitant]
     Route: 048
  4. FUROSEMIDE [Concomitant]
     Route: 065
  5. ASCORBIC ACID AND CALCIUM PHOSPHATE, TRIBASIC AND CYANOCOBALAMIN AND F [Concomitant]
     Route: 048
  6. FOLIC ACID [Concomitant]
     Route: 065
  7. ASCORBIC ACID [Concomitant]
     Route: 065

REACTIONS (3)
  - DELIRIUM [None]
  - OVERDOSE [None]
  - RENAL FAILURE CHRONIC [None]
